FAERS Safety Report 5358660-7 (Version None)
Quarter: 2007Q2

REPORT INFORMATION
  Report Type: 
  Country: None (occurrence: None)
  Receive Date: 20070615
  Receipt Date: 20070611
  Transmission Date: 20071010
  Serious: Yes (Hospitalization)
  Sender: FDA-Public Use
  Company Number: FR-BRISTOL-MYERS SQUIBB COMPANY-13811591

PATIENT
  Age: 41 Year
  Sex: Male
  Weight: 75 kg

DRUGS (6)
  1. PRAVASTATIN [Suspect]
     Indication: ACUTE MYOCARDIAL INFARCTION
     Route: 048
     Dates: start: 20020101
  2. HYDREA [Suspect]
     Indication: THROMBOCYTOPENIA
     Route: 048
     Dates: end: 20070423
  3. SECTRAL [Suspect]
     Indication: ACUTE MYOCARDIAL INFARCTION
     Route: 048
     Dates: start: 20020101
  4. ASPIRIN [Suspect]
     Indication: ACUTE MYOCARDIAL INFARCTION
     Route: 048
     Dates: start: 20020101
  5. ADANCOR [Suspect]
     Indication: ACUTE MYOCARDIAL INFARCTION
     Dates: start: 20020101
  6. INIPOMP [Suspect]
     Dates: start: 20020101

REACTIONS (3)
  - ANAEMIA HAEMOLYTIC AUTOIMMUNE [None]
  - PANCYTOPENIA [None]
  - THROMBOCYTOPENIA [None]
